FAERS Safety Report 11806424 (Version 3)
Quarter: 2018Q2

REPORT INFORMATION
  Report Type: Spontaneous
  Country: JP (occurrence: JP)
  Receive Date: 20151207
  Receipt Date: 20180403
  Transmission Date: 20180711
  Serious: Yes (Other)
  Sender: FDA-Public Use
  Company Number: JP-JNJFOC-20151202325

PATIENT

DRUGS (2)
  1. CANAGLIFLOZIN [Suspect]
     Active Substance: CANAGLIFLOZIN
     Indication: TYPE 2 DIABETES MELLITUS
     Route: 048
  2. CANAGLIFLOZIN [Suspect]
     Active Substance: CANAGLIFLOZIN
     Indication: TYPE 2 DIABETES MELLITUS
     Route: 048

REACTIONS (50)
  - Blood creatine phosphokinase increased [Unknown]
  - Off label use [Unknown]
  - Micturition urgency [Unknown]
  - Hypotension [Unknown]
  - Cystitis [Unknown]
  - Vulvovaginal candidiasis [Unknown]
  - Genital candidiasis [Unknown]
  - Hypoglycaemia [Unknown]
  - Atrial fibrillation [Unknown]
  - Lower limb fracture [Unknown]
  - Alanine aminotransferase decreased [Unknown]
  - Vulvovaginitis [Unknown]
  - Balanoposthitis [Unknown]
  - Cerebrovascular accident [Unknown]
  - Skin disorder [Unknown]
  - Haemoglobin increased [Unknown]
  - Seborrhoeic dermatitis [Unknown]
  - Blood urea increased [Unknown]
  - Dizziness postural [Unknown]
  - Dehydration [Unknown]
  - Vulvitis [Unknown]
  - Lacunar infarction [Unknown]
  - Pyelonephritis [Unknown]
  - Urticaria [Unknown]
  - Orthostatic hypotension [Unknown]
  - Aspartate aminotransferase decreased [Unknown]
  - Haematocrit increased [Unknown]
  - Carotid artery stenosis [Unknown]
  - Cardiovascular disorder [Unknown]
  - Diabetic ulcer [Unknown]
  - Urinary tract infection [Unknown]
  - Acute myocardial infarction [Unknown]
  - Myocardial infarction [Unknown]
  - Dry mouth [Unknown]
  - Thirst [Unknown]
  - Syncope [Unknown]
  - Genital infection fungal [Unknown]
  - Low density lipoprotein abnormal [Unknown]
  - Weight decreased [Unknown]
  - Incorrect dose administered [Unknown]
  - Rash [Unknown]
  - Nocturia [Unknown]
  - Vaginal infection [Unknown]
  - Hypovolaemia [Unknown]
  - Gamma-glutamyltransferase decreased [Unknown]
  - Blood ketone body increased [Unknown]
  - Polyuria [Unknown]
  - Pollakiuria [Unknown]
  - Polydipsia [Unknown]
  - Genital infection [Unknown]
